FAERS Safety Report 4631467-1 (Version None)
Quarter: 2005Q2

REPORT INFORMATION
  Report Type: 
  Country: None (occurrence: None)
  Receive Date: 20050407
  Receipt Date: 20050401
  Transmission Date: 20051028
  Serious: Yes (Hospitalization)
  Sender: FDA-Public Use
  Company Number: 2005P1000017

PATIENT
  Age: 15 Year
  Sex: Female

DRUGS (11)
  1. BUSULFEX [Suspect]
     Indication: ACUTE LYMPHOCYTIC LEUKAEMIA
     Dosage: 164 MG/DAY (42 MG/DOSE X 4 TIMES)
     Route: 042
     Dates: start: 20030205, end: 20030505
  2. CYCLOPHOSPHAMIDE [Concomitant]
  3. MESNA [Concomitant]
  4. PHENYTOIN [Concomitant]
  5. ZOFRAN [Concomitant]
  6. GANCICLOVIR [Concomitant]
  7. ANTIBIOTICS (VANCOMYCIN, MEROPENEM, CEFTAZIDIME, CIPROFLOXACIN, ETC) [Concomitant]
  8. ANTIFUNGALS (AMPHOTERICIN-B, DIFLUCAN) [Concomitant]
  9. IMMUNOSUPRESSANTS [Concomitant]
  10. HEPARIN [Concomitant]
  11. GRASIN [Concomitant]

REACTIONS (2)
  - COMPLICATIONS OF BONE MARROW TRANSPLANT [None]
  - DELAYED ENGRAFTMENT [None]
